FAERS Safety Report 7833180-6 (Version None)
Quarter: 2011Q4

REPORT INFORMATION
  Report Type: 
  Country: None (occurrence: None)
  Receive Date: 20111024
  Receipt Date: 20111012
  Transmission Date: 20120403
  Serious: Yes (Other)
  Sender: FDA-Public Use
  Company Number: CH-JNJFOC-20111005387

PATIENT
  Age: 51 Year
  Sex: Male

DRUGS (5)
  1. PALIPERIDONE [Suspect]
     Indication: PSYCHOTIC DISORDER
     Route: 030
     Dates: start: 20110928
  2. CYMBALTA [Suspect]
     Indication: DEPRESSION
     Route: 048
  3. CYMBALTA [Suspect]
     Indication: BIPOLAR DISORDER
     Route: 048
  4. PALIPERIDONE [Suspect]
     Route: 030
     Dates: start: 20110920
  5. INVEGA [Suspect]
     Indication: PSYCHOTIC DISORDER
     Route: 048
     Dates: start: 20110901, end: 20110901

REACTIONS (4)
  - DRUG INEFFECTIVE [None]
  - BULIMIA NERVOSA [None]
  - LIBIDO DECREASED [None]
  - ERECTILE DYSFUNCTION [None]
